FAERS Safety Report 4281747-7 (Version None)
Quarter: 2004Q1

REPORT INFORMATION
  Report Type: 
  Country: None (occurrence: None)
  Receive Date: 20040112
  Receipt Date: 20030913
  Transmission Date: 20041129
  Serious: No
  Sender: FDA-Public Use
  Company Number: PHEH2003US08448

PATIENT
  Sex: Male

DRUGS (1)
  1. ELIDEL [Suspect]
     Dosage: TOPICAL
     Route: 061

REACTIONS (3)
  - APPLICATION SITE DRYNESS [None]
  - APPLICATION SITE ERYTHEMA [None]
  - RASH PAPULAR [None]
